FAERS Safety Report 9919135 (Version 2)
Quarter: 2015Q1

REPORT INFORMATION
  Report Type: Spontaneous
  Country: US (occurrence: US)
  Receive Date: 20140224
  Receipt Date: 20150217
  Transmission Date: 20150721
  Serious: No
  Sender: FDA-Public Use
  Company Number: US-AMARIN PHARMA, INC.-2013AMR000095

PATIENT
  Sex: Female

DRUGS (7)
  1. VASCEPA [Suspect]
     Active Substance: ETHYL ICOSAPENTATE
     Route: 065
     Dates: start: 20131213
  2. HYDROCHLOROTHIAZIDE. [Concomitant]
     Active Substance: HYDROCHLOROTHIAZIDE
     Indication: HYPERTENSION
     Route: 065
  3. PRAVASTATIN [Concomitant]
     Active Substance: PRAVASTATIN\PRAVASTATIN SODIUM
     Indication: BLOOD CHOLESTEROL
     Route: 065
  4. VASCEPA [Suspect]
     Active Substance: ETHYL ICOSAPENTATE
     Route: 065
     Dates: start: 20131212, end: 20131213
  5. VASCEPA [Suspect]
     Active Substance: ETHYL ICOSAPENTATE
     Indication: BLOOD TRIGLYCERIDES
     Route: 065
     Dates: start: 20131210, end: 20131212
  6. ATENOLOL. [Concomitant]
     Active Substance: ATENOLOL
     Indication: HYPERTENSION
     Route: 065
  7. NORVASC [Concomitant]
     Active Substance: AMLODIPINE BESYLATE
     Indication: HYPERTENSION
     Route: 065

REACTIONS (4)
  - Asthenia [Recovered/Resolved]
  - Dizziness [Recovered/Resolved]
  - Gait disturbance [Unknown]
  - Arthritis [Not Recovered/Not Resolved]

NARRATIVE: CASE EVENT DATE: 20131211
